FAERS Safety Report 9067188 (Version 4)
Quarter: 2013Q1

REPORT INFORMATION
  Report Type: Spontaneous
  Country: DE (occurrence: DE)
  Receive Date: 20130214
  Receipt Date: 20130320
  Transmission Date: 20140127
  Serious: Yes (Hospitalization, Other)
  Sender: FDA-Public Use
  Company Number: DE-PFIZER INC-2013057781

PATIENT
  Age: 51 Year
  Sex: Female

DRUGS (5)
  1. PANTOZOL [Suspect]
     Dosage: APPROXIMATELY 50 TABLETS, SINGLE
     Route: 048
     Dates: start: 20130131
  2. IBUPROFEN [Suspect]
     Dosage: 50-100 TABLETS, SINGLE
     Dates: start: 20130131
  3. LYRICA [Suspect]
     Dosage: (50-100 CAPSULES), SINGLE
     Dates: start: 20130131
  4. TARGIN [Suspect]
     Dosage: (50-100 TABLETS), SINGLE
     Route: 065
     Dates: start: 20130131
  5. METAMIZOLE [Suspect]
     Dosage: (50-100 TABLETS), SINGLE
     Dates: start: 20130131

REACTIONS (5)
  - Suicidal ideation [Unknown]
  - Overdose [Unknown]
  - Intentional drug misuse [Unknown]
  - Vomiting [Recovered/Resolved]
  - Somnolence [Recovered/Resolved]
